FAERS Safety Report 9587638 (Version 1)
Quarter: 2013Q4

REPORT INFORMATION
  Report Type: Spontaneous
  Country: GB (occurrence: GB)
  Receive Date: 20131003
  Receipt Date: 20131003
  Transmission Date: 20140711
  Serious: Yes (Congenital Anomaly)
  Sender: FDA-Public Use
  Company Number: GB-COVIDIEN/TYCO HEALTHCARE/MALLINCKRODT-T201304463

PATIENT
  Age: 0 Year
  Sex: Male
  Weight: 4 kg

DRUGS (1)
  1. SODIUM IODIDE (I 131) [Suspect]
     Indication: BASEDOW^S DISEASE
     Dosage: UNK
     Route: 064
     Dates: start: 20030206

REACTIONS (2)
  - Microsomia [Not Recovered/Not Resolved]
  - Ear malformation [Not Recovered/Not Resolved]
